FAERS Safety Report 5414670-2 (Version None)
Quarter: 2007Q3

REPORT INFORMATION
  Report Type: 
  Country: None (occurrence: None)
  Receive Date: 20070813
  Receipt Date: 20070724
  Transmission Date: 20080115
  Serious: Yes (Disabling)
  Sender: FDA-Public Use
  Company Number: 2007RR-08899

PATIENT
  Age: 36 Year
  Sex: Male

DRUGS (1)
  1. DOXYCYCLINE [Suspect]
     Indication: MYCOPLASMA INFECTION
     Dosage: 200 MG, QD; 100 MG, 6 TIMES DAILY

REACTIONS (3)
  - BLINDNESS TRANSIENT [None]
  - INTRACRANIAL PRESSURE INCREASED [None]
  - VISUAL FIELD DEFECT [None]
